FAERS Safety Report 18132847 (Version 1)
Quarter: 2020Q3

REPORT INFORMATION
  Report Type: Spontaneous
  Country: US (occurrence: US)
  Receive Date: 20200811
  Receipt Date: 20200811
  Transmission Date: 20201103
  Serious: No
  Sender: FDA-Public Use
  Company Number: US-ASTRAZENECA-2020SE98506

PATIENT
  Age: 965 Month
  Sex: Female
  Weight: 87.5 kg

DRUGS (5)
  1. BUDESONIDE AND FORMOTEROL [Suspect]
     Active Substance: BUDESONIDE\FORMOTEROL
     Indication: DYSPNOEA
     Dosage: 160/4.5 120 INHALATIONS, 2 PUFFS TWO TIMES A DAY
     Route: 055
  2. MAALOX ANTACID [Concomitant]
     Active Substance: ALUMINUM HYDROXIDE\DIMETHICONE\MAGNESIUM HYDROXIDE
  3. NYSTATIN. [Concomitant]
     Active Substance: NYSTATIN
  4. LIDOCAINE. [Concomitant]
     Active Substance: LIDOCAINE
  5. SYMBICORT [Suspect]
     Active Substance: BUDESONIDE\FORMOTEROL FUMARATE DIHYDRATE
     Indication: DYSPNOEA
     Dosage: 160/4.5 120 INHALATIONS, 2 PUFFS TWO TIMES A DAY
     Route: 055

REACTIONS (4)
  - Ear pain [Recovering/Resolving]
  - Oropharyngeal pain [Not Recovered/Not Resolved]
  - Cough [Not Recovered/Not Resolved]
  - Candida infection [Recovering/Resolving]

NARRATIVE: CASE EVENT DATE: 201909
